FAERS Safety Report 8842427 (Version 1)
Quarter: 2012Q4

REPORT INFORMATION
  Report Type: Spontaneous
  Country: US (occurrence: None)
  Receive Date: 20121015
  Receipt Date: 20121015
  Transmission Date: 20130627
  Serious: Yes (Other)
  Sender: FDA-Public Use
  Company Number: None

PATIENT
  Age: 64 Year
  Sex: Female
  Weight: 68.04 kg

DRUGS (1)
  1. GEMFIBROZIL [Suspect]
     Indication: TRIGLYCERIDES HIGH
     Dosage: before breakfast
before dinner
     Route: 048

REACTIONS (1)
  - Blood glucose increased [None]
